FAERS Safety Report 6039758-7 (Version None)
Quarter: 2009Q1

REPORT INFORMATION
  Report Type: 
  Country: None (occurrence: None)
  Receive Date: 20090116
  Receipt Date: 20090107
  Transmission Date: 20090719
  Serious: Yes (Other)
  Sender: FDA-Public Use
  Company Number: US-JNJFOC-20090101597

PATIENT
  Age: 75 Year
  Sex: Female
  Weight: 68.04 kg

DRUGS (2)
  1. TYLENOL (CAPLET) [Suspect]
     Indication: SCOLIOSIS
     Route: 048
  2. TYLENOL (CAPLET) [Suspect]
     Indication: ARTHRITIS
     Route: 048

REACTIONS (4)
  - DYSARTHRIA [None]
  - LETHARGY [None]
  - MENTAL IMPAIRMENT [None]
  - SOMNOLENCE [None]
